FAERS Safety Report 25779779 (Version 1)
Quarter: 2025Q3

REPORT INFORMATION
  Report Type: Spontaneous
  Country: CN (occurrence: CN)
  Receive Date: 20250909
  Receipt Date: 20250909
  Transmission Date: 20251020
  Serious: Yes (Life-Threatening, Hospitalization)
  Sender: ABBVIE
  Company Number: CN-ABBVIE-6449704

PATIENT
  Age: 52 Year
  Sex: Male
  Weight: 67 kg

DRUGS (3)
  1. VENETOCLAX [Suspect]
     Active Substance: VENETOCLAX
     Indication: Acute leukaemia
     Dosage: 400 MILLIGRAM
     Route: 048
     Dates: start: 20250809, end: 20250815
  2. MITOXANTRONE HYDROCHLORIDE [Suspect]
     Active Substance: MITOXANTRONE HYDROCHLORIDE
     Indication: Acute leukaemia
     Dosage: 30 MILLIGRAM
     Route: 041
     Dates: start: 20250809, end: 20250809
  3. CYTARABINE [Suspect]
     Active Substance: CYTARABINE
     Indication: Acute leukaemia
     Dosage: 100 MILLIGRAM
     Route: 041
     Dates: start: 20250809, end: 20250815

REACTIONS (1)
  - Myelosuppression [Unknown]

NARRATIVE: CASE EVENT DATE: 20250822
